FAERS Safety Report 8173833-6 (Version None)
Quarter: 2012Q1

REPORT INFORMATION
  Report Type: 
  Country: None (occurrence: None)
  Receive Date: 20120229
  Receipt Date: 20120216
  Transmission Date: 20120608
  Serious: Yes (Hospitalization, Other)
  Sender: FDA-Public Use
  Company Number: US-ELI_LILLY_AND_COMPANY-US201104006798

PATIENT
  Sex: Female
  Weight: 60 kg

DRUGS (15)
  1. METHOTREXATE [Concomitant]
     Dosage: UNK, WEEKLY (1/W)
  2. FOLIC ACID [Concomitant]
  3. NORCO [Concomitant]
     Indication: PAIN
  4. FORTEO [Suspect]
     Dosage: 20 UG, QD
     Route: 058
  5. LOZAL [Concomitant]
  6. CALCIUM CARBONATE [Concomitant]
  7. FISH OIL [Concomitant]
  8. FORTEO [Suspect]
     Dosage: 20 UG, QD
     Route: 058
  9. PREDNISONE TAB [Concomitant]
     Dosage: 5 MG, QD
  10. ASPIRIN [Concomitant]
  11. FORTEO [Suspect]
     Indication: OSTEOPOROSIS
     Dosage: 20 UG, QD
     Route: 058
     Dates: start: 20100114
  12. LOTREL [Concomitant]
     Dosage: UNK, QD
  13. XALATAN [Concomitant]
  14. VITAMIN D [Concomitant]
  15. CENTRUM [Concomitant]

REACTIONS (7)
  - OEDEMA [None]
  - HEART RATE DECREASED [None]
  - HYPOTENSION [None]
  - ARTHRITIS [None]
  - ARTHRALGIA [None]
  - HYPOACUSIS [None]
  - CONSTIPATION [None]
